FAERS Safety Report 17779457 (Version 1)
Quarter: 2020Q2

REPORT INFORMATION
  Report Type: Spontaneous
  Country: FR (occurrence: FR)
  Receive Date: 20200513
  Receipt Date: 20200513
  Transmission Date: 20200714
  Serious: Yes (Hospitalization, Other)
  Sender: FDA-Public Use
  Company Number: FR-SA-2020SA120941

PATIENT
  Age: 53 Year
  Sex: Male

DRUGS (6)
  1. OXALIPLATIN. [Suspect]
     Active Substance: OXALIPLATIN
     Indication: CHEMOTHERAPY
     Dosage: UNK UNK, QCY
  2. IRINOTECAN [Suspect]
     Active Substance: IRINOTECAN
     Indication: CHEMOTHERAPY
     Dosage: UNK UNK, QCY
  3. OXALIPLATIN. [Suspect]
     Active Substance: OXALIPLATIN
     Indication: DUCTAL ADENOCARCINOMA OF PANCREAS
     Dosage: UNK UNK, QCY
  4. FLUOROURACIL. [Suspect]
     Active Substance: FLUOROURACIL
     Indication: CHEMOTHERAPY
     Dosage: UNK UNK, QCY
  5. FLUOROURACIL. [Suspect]
     Active Substance: FLUOROURACIL
     Indication: DUCTAL ADENOCARCINOMA OF PANCREAS
     Dosage: UNK UNK, QCY
  6. IRINOTECAN [Suspect]
     Active Substance: IRINOTECAN
     Indication: DUCTAL ADENOCARCINOMA OF PANCREAS
     Dosage: UNK UNK, QCY

REACTIONS (12)
  - Lymphangiosis carcinomatosa [Unknown]
  - Ascites [Unknown]
  - Blood creatinine increased [Unknown]
  - Renal fusion anomaly [Unknown]
  - Oliguria [Unknown]
  - Acute kidney injury [Unknown]
  - Fatigue [Unknown]
  - Proteinuria [Unknown]
  - Jaundice [Unknown]
  - Decreased appetite [Unknown]
  - Haematuria [Unknown]
  - Renal tubular necrosis [Unknown]
